FAERS Safety Report 23721523 (Version 3)
Quarter: 2024Q3

REPORT INFORMATION
  Report Type: Report from Study
  Country: CN (occurrence: CN)
  Receive Date: 20240409
  Receipt Date: 20240816
  Transmission Date: 20241016
  Serious: Yes (Other)
  Sender: RANBAXY
  Company Number: CN-SUN PHARMACEUTICAL INDUSTRIES LTD-2023R1-425529

PATIENT
  Age: 83 Year
  Sex: Male
  Weight: 71 kg

DRUGS (3)
  1. SONIDEGIB [Suspect]
     Active Substance: SONIDEGIB
     Indication: Basal cell carcinoma
     Dosage: UNK
     Route: 048
     Dates: start: 20231013, end: 20240105
  2. Qixue Tongluo Pills [Concomitant]
     Indication: Angiosclerosis
     Dosage: UNK (4 PILLS, 3 TIMES A DAY)
     Route: 048
     Dates: start: 20231117
  3. Naodesheng Pill [Concomitant]
     Indication: Angiosclerosis
     Dosage: UNK
     Route: 065

REACTIONS (6)
  - Myocardial ischaemia [Recovered/Resolved]
  - Muscle spasms [Recovered/Resolved]
  - Myoglobin blood increased [Not Recovered/Not Resolved]
  - Chest discomfort [Recovering/Resolving]
  - Blood creatine phosphokinase [Recovered/Resolved]
  - Retching [Recovered/Resolved]

NARRATIVE: CASE EVENT DATE: 20231115
